FAERS Safety Report 23222824 (Version 6)
Quarter: 2024Q1

REPORT INFORMATION
  Report Type: Spontaneous
  Country: US (occurrence: US)
  Receive Date: 20231123
  Receipt Date: 20240229
  Transmission Date: 20240410
  Serious: No
  Sender: FDA-Public Use
  Company Number: US-BIOGEN-2023BI01237298

PATIENT
  Age: 54 Year
  Sex: Female

DRUGS (29)
  1. VUMERITY [Suspect]
     Active Substance: DIROXIMEL FUMARATE
     Indication: Multiple sclerosis
     Route: 050
     Dates: start: 20231121
  2. VUMERITY [Suspect]
     Active Substance: DIROXIMEL FUMARATE
     Dosage: TAKE 2 CAPSULES (462MG) BY MOUTH TWICE DAILY
     Route: 050
     Dates: start: 20231130
  3. ELIQUIS [Concomitant]
     Active Substance: APIXABAN
     Route: 050
  4. ZYRTEC [Concomitant]
     Active Substance: CETIRIZINE HYDROCHLORIDE
     Route: 050
  5. CYMBALTA [Concomitant]
     Active Substance: DULOXETINE HYDROCHLORIDE
     Route: 050
  6. METOPROLOL TARTRATE [Concomitant]
     Active Substance: METOPROLOL TARTRATE
     Route: 050
  7. ZOFRAN [Concomitant]
     Active Substance: ONDANSETRON HYDROCHLORIDE
     Route: 050
  8. MIRALAX [Concomitant]
     Active Substance: POLYETHYLENE GLYCOL 3350
     Route: 050
  9. NORVASC [Concomitant]
     Active Substance: AMLODIPINE BESYLATE
     Route: 050
  10. PRILOSEC [Concomitant]
     Active Substance: OMEPRAZOLE MAGNESIUM
     Route: 050
  11. ZANAFLEX [Concomitant]
     Active Substance: TIZANIDINE HYDROCHLORIDE
     Route: 050
  12. LISINOPRIL [Concomitant]
     Active Substance: LISINOPRIL
     Route: 050
  13. TRAZODONE HCL [Concomitant]
     Active Substance: TRAZODONE HYDROCHLORIDE
     Route: 050
  14. ALPHAGAN P [Concomitant]
     Active Substance: BRIMONIDINE TARTRATE
     Dosage: 0.1PERCENT (5ML)
     Route: 050
  15. CALCIUM\VITAMIN D [Concomitant]
     Active Substance: CALCIUM\VITAMIN D
     Route: 050
  16. URSODIOL [Concomitant]
     Active Substance: URSODIOL
     Route: 050
  17. ARIMIDEX [Concomitant]
     Active Substance: ANASTROZOLE
     Route: 050
  18. SILVADENE [Concomitant]
     Active Substance: SILVER SULFADIAZINE
     Route: 050
  19. TRIAMCINOLONE ACETONIDE [Concomitant]
     Active Substance: TRIAMCINOLONE ACETONIDE
     Dosage: 0.1 PERCENT CREAM
     Route: 050
  20. FERROUS SULFATE [Concomitant]
     Active Substance: FERROUS SULFATE
     Route: 050
  21. VENTOLIN HFA [Concomitant]
     Active Substance: ALBUTEROL SULFATE
     Dosage: 90 MCG INHALER
     Route: 050
  22. FLONASE [Concomitant]
     Active Substance: FLUTICASONE PROPIONATE
     Route: 050
  23. MINOXIDIL [Concomitant]
     Active Substance: MINOXIDIL
     Dosage: MINOXIDIL FOR MEN EXTRA S
     Route: 050
  24. VITAMIN B12 [Concomitant]
     Active Substance: CYANOCOBALAMIN
     Route: 050
  25. CRESTOR [Concomitant]
     Active Substance: ROSUVASTATIN CALCIUM
     Route: 050
  26. OZEMPIC [Concomitant]
     Active Substance: SEMAGLUTIDE
     Route: 050
  27. SENOKOT-S [Concomitant]
     Active Substance: DOCUSATE SODIUM\SENNOSIDES
     Route: 050
  28. TOPAMAX [Concomitant]
     Active Substance: TOPIRAMATE
     Route: 050
  29. AMMONIUM LACTATE [Concomitant]
     Active Substance: AMMONIUM LACTATE
     Indication: Product used for unknown indication
     Dosage: DAILY
     Route: 050

REACTIONS (10)
  - Muscle spasms [Unknown]
  - Dry mouth [Unknown]
  - Stomatitis [Unknown]
  - Abdominal pain upper [Unknown]
  - Nausea [Unknown]
  - Diarrhoea [Unknown]
  - Rash [Unknown]
  - Pruritus [Unknown]
  - Alopecia [Unknown]
  - Abdominal pain [Recovered/Resolved]

NARRATIVE: CASE EVENT DATE: 20231101
